FAERS Safety Report 18532353 (Version 1)
Quarter: 2020Q4

REPORT INFORMATION
  Report Type: Spontaneous
  Country: NL (occurrence: NL)
  Receive Date: 20201123
  Receipt Date: 20201123
  Transmission Date: 20210114
  Serious: Yes (Life-Threatening, Hospitalization, Other)
  Sender: FDA-Public Use
  Company Number: NL-TEVA-2020-NL-1850375

PATIENT
  Age: 43 Year
  Sex: Male

DRUGS (2)
  1. VENLAFAXINE CAPSULE MGA  75MG / BRAND NAME NOT SPECIFIED [Concomitant]
     Active Substance: VENLAFAXINE HYDROCHLORIDE
     Dosage: 75 MG, THERAPY END DATE: ASKED BUT UNKNOWN
     Dates: end: 2020
  2. LAMOTRIGINE DISPERTABLET 50MG / BRAND NAME NOT SPECIFIED [Suspect]
     Active Substance: LAMOTRIGINE
     Indication: DEPERSONALISATION/DEREALISATION DISORDER
     Dosage: THERAPY END DATE: ASKED BUT UNKNOWN
     Dates: start: 20200801

REACTIONS (1)
  - Haemophagocytic lymphohistiocytosis [Unknown]

NARRATIVE: CASE EVENT DATE: 20200820
